FAERS Safety Report 6266088-0 (Version None)
Quarter: 2009Q3

REPORT INFORMATION
  Report Type: 
  Country: None (occurrence: None)
  Receive Date: 20090713
  Receipt Date: 20090703
  Transmission Date: 20100115
  Serious: Yes (Death, Hospitalization)
  Sender: FDA-Public Use
  Company Number: US-ELI_LILLY_AND_COMPANY-US200907000920

PATIENT
  Sex: Female

DRUGS (2)
  1. PEMETREXED [Suspect]
     Indication: NEOPLASM MALIGNANT
     Dosage: 500 MG/M2, OTHER
     Route: 042
     Dates: start: 20081208, end: 20090501
  2. OTHER PHARMA COMPANY INV DRUG [Suspect]
     Indication: NEOPLASM MALIGNANT
     Dosage: 800 MG, DAILY (1/D)
     Route: 048
     Dates: start: 20081201, end: 20090501

REACTIONS (2)
  - NEUTROPENIA [None]
  - PNEUMONIA [None]
